FAERS Safety Report 12904166 (Version 2)
Quarter: 2016Q4

REPORT INFORMATION
  Report Type: Report from Study
  Country: TW (occurrence: TW)
  Receive Date: 20161102
  Receipt Date: 20161104
  Transmission Date: 20170207
  Serious: Yes (Hospitalization)
  Sender: FDA-Public Use
  Company Number: PHHO2016TW001318

PATIENT
  Age: 35 Year
  Sex: Male
  Weight: 70 kg

DRUGS (11)
  1. CERTICAN [Suspect]
     Active Substance: EVEROLIMUS
     Indication: LIVER TRANSPLANT
     Dosage: 1 MG, Q12H
     Route: 048
     Dates: start: 20140814, end: 20141113
  2. TACROLIMUS. [Suspect]
     Active Substance: TACROLIMUS
     Indication: LIVER TRANSPLANT
     Dosage: 1 MG, (RUN-IN)
     Route: 048
     Dates: start: 20140718, end: 20140720
  3. CERTICAN [Suspect]
     Active Substance: EVEROLIMUS
     Dosage: 0.5 MG, Q12H
     Route: 048
     Dates: start: 20141217, end: 20160111
  4. TACROLIMUS. [Suspect]
     Active Substance: TACROLIMUS
     Dosage: 1.5 MG, Q12H
     Route: 048
     Dates: start: 20151221, end: 20160110
  5. TACROLIMUS. [Suspect]
     Active Substance: TACROLIMUS
     Dosage: 1 MG, Q12H
     Route: 048
     Dates: start: 20160206, end: 20160209
  6. ENTECAVIR. [Concomitant]
     Active Substance: ENTECAVIR
     Indication: HEPATITIS B
     Dosage: 0.5 MG, QD
     Route: 048
     Dates: start: 20140718
  7. CERTICAN [Suspect]
     Active Substance: EVEROLIMUS
     Dosage: 0.75 MG, Q12H
     Route: 048
     Dates: start: 20141114, end: 20141125
  8. TACROLIMUS. [Suspect]
     Active Substance: TACROLIMUS
     Dosage: 1.5 MG, Q12H
     Route: 048
     Dates: start: 20140814, end: 20140821
  9. TACROLIMUS. [Suspect]
     Active Substance: TACROLIMUS
     Dosage: 0.5 MG, Q12H
     Route: 048
     Dates: start: 20141114, end: 20141125
  10. AMBROXOL HYDROCHLORIDE [Concomitant]
     Active Substance: AMBROXOL HYDROCHLORIDE
     Indication: UPPER RESPIRATORY TRACT INFECTION
     Dosage: 30 MG,
     Route: 048
     Dates: start: 20151122
  11. BENZONATATE. [Concomitant]
     Active Substance: BENZONATATE
     Indication: UPPER RESPIRATORY TRACT INFECTION
     Dosage: 100 MG, TID
     Route: 048
     Dates: start: 20151204

REACTIONS (1)
  - Pulmonary tuberculosis [Not Recovered/Not Resolved]

NARRATIVE: CASE EVENT DATE: 20160111
